FAERS Safety Report 23958835 (Version 2)
Quarter: 2024Q2

REPORT INFORMATION
  Report Type: Report from Study
  Country: US (occurrence: US)
  Receive Date: 20240611
  Receipt Date: 20240628
  Transmission Date: 20240716
  Serious: Yes (Other)
  Sender: FDA-Public Use
  Company Number: US-ABBVIE-5678161

PATIENT
  Age: 58 Year
  Sex: Female
  Weight: 61 kg

DRUGS (2)
  1. SKYRIZI [Suspect]
     Active Substance: RISANKIZUMAB-RZAA
     Indication: Psoriasis
     Route: 058
     Dates: start: 20220222, end: 20220222
  2. SKYRIZI [Suspect]
     Active Substance: RISANKIZUMAB-RZAA
     Route: 058
     Dates: start: 20220223

REACTIONS (4)
  - Limb operation [Recovered/Resolved]
  - Therapeutic response shortened [Unknown]
  - Psoriasis [Recovered/Resolved]
  - Pain of skin [Unknown]

NARRATIVE: CASE EVENT DATE: 20240401
